FAERS Safety Report 5016133-5 (Version None)
Quarter: 2006Q2

REPORT INFORMATION
  Report Type: 
  Country: None (occurrence: None)
  Receive Date: 20060414
  Receipt Date: 20060314
  Transmission Date: 20061013
  Serious: No
  Sender: FDA-Public Use
  Company Number: 2006SP001234

PATIENT
  Age: 58 Year
  Sex: Female
  Weight: 90.7194 kg

DRUGS (4)
  1. LUNESTA [Suspect]
     Indication: INSOMNIA
     Dosage: 3 MG;HS;ORAL
     Route: 048
     Dates: start: 20060101
  2. WARFARIN SODIUM [Concomitant]
  3. ZOLOFT [Concomitant]
  4. OTHER CHEMOTHERAPEUTICS [Concomitant]

REACTIONS (1)
  - MIDDLE INSOMNIA [None]
